FAERS Safety Report 19463426 (Version 4)
Quarter: 2022Q3

REPORT INFORMATION
  Report Type: Spontaneous
  Country: FR (occurrence: FR)
  Receive Date: 20210625
  Receipt Date: 20220907
  Transmission Date: 20221027
  Serious: Yes (Other)
  Sender: FDA-Public Use
  Company Number: FR-ORGANON-O2106FRA002008

PATIENT
  Age: 34 Year
  Sex: Female
  Weight: 80 kg

DRUGS (1)
  1. NEXPLANON [Suspect]
     Active Substance: ETONOGESTREL
     Dosage: 1 IMPLANT (IN HER LEFT ARM (ALSO REPORTED AS RIGHT ARM), RIGHT HANDED)
     Route: 058
     Dates: start: 20190318, end: 20210622

REACTIONS (4)
  - Pregnancy with implant contraceptive [Recovered/Resolved]
  - Polyhydramnios [Recovered/Resolved]
  - Unintended pregnancy [Recovered/Resolved]
  - Device placement issue [Recovered/Resolved]

NARRATIVE: CASE EVENT DATE: 20190318
